FAERS Safety Report 7353647-7 (Version None)
Quarter: 2011Q1

REPORT INFORMATION
  Report Type: 
  Country: None (occurrence: None)
  Receive Date: 20110315
  Receipt Date: 20110315
  Transmission Date: 20110831
  Serious: Yes (Hospitalization)
  Sender: FDA-Public Use
  Company Number: US-ABBOTT-11P-163-0711036-00

PATIENT
  Age: 31 Year
  Sex: Female

DRUGS (3)
  1. UNKNOWN BIRTH CONTROL [Concomitant]
     Indication: PRODUCT USED FOR UNKNOWN INDICATION
  2. HUMIRA [Suspect]
     Indication: PSORIASIS
     Dates: start: 20100923
  3. HUMIRA [Suspect]
     Dates: end: 20110225

REACTIONS (8)
  - SEPSIS [None]
  - PULMONARY EMBOLISM [None]
  - PYREXIA [None]
  - UPPER RESPIRATORY TRACT INFECTION [None]
  - HYPOTENSION [None]
  - DEHYDRATION [None]
  - THROMBOSIS [None]
  - DYSPNOEA [None]
